FAERS Safety Report 22227562 (Version 2)
Quarter: 2023Q2

REPORT INFORMATION
  Report Type: Spontaneous
  Country: US (occurrence: US)
  Receive Date: 20230419
  Receipt Date: 20230517
  Transmission Date: 20230721
  Serious: Yes (Hospitalization, Other)
  Sender: FDA-Public Use
  Company Number: US-GSKCCFUS-Case-01676734_AE-94578

PATIENT

DRUGS (5)
  1. LAMICTAL [Interacting]
     Active Substance: LAMOTRIGINE
     Indication: Myoclonic epilepsy
     Dosage: 250 MG, TID , 100 MG IN THE MORNING, 75 MG IN THE AFTERNOON, AND 75 MG AT NIGHT
  2. DEPAKOTE [Interacting]
     Active Substance: DIVALPROEX SODIUM
     Indication: Myoclonic epilepsy
     Dosage: 3500 MG, QD
  3. KLONOPIN [Suspect]
     Active Substance: CLONAZEPAM
     Indication: Myoclonic epilepsy
     Dosage: 0.5 MG, Z, FIVE TIMES A DAY
  4. EPIDIOLEX [Suspect]
     Active Substance: CANNABIDIOL
     Indication: Myoclonic epilepsy
     Dosage: UNK
  5. KEPPRA [Suspect]
     Active Substance: LEVETIRACETAM
     Indication: Myoclonic epilepsy
     Dosage: 250 MG, TID

REACTIONS (15)
  - Ammonia abnormal [Unknown]
  - Blood albumin decreased [Unknown]
  - Toxicity to various agents [Unknown]
  - Pneumonia [Unknown]
  - Disease progression [Unknown]
  - Renal disorder [Unknown]
  - Blood potassium abnormal [Unknown]
  - Haemoglobin decreased [Unknown]
  - Pneumonia aspiration [Unknown]
  - Cardiac failure congestive [Unknown]
  - Renal failure [Unknown]
  - Seizure [Unknown]
  - Speech disorder [Unknown]
  - Product dose omission issue [Unknown]
  - Labelled drug-drug interaction issue [Unknown]
